FAERS Safety Report 8711197 (Version 2)
Quarter: 2012Q4

REPORT INFORMATION
  Report Type: 
  Country: US (occurrence: US)
  Receive Date: 20120807
  Receipt Date: 20120920
  Transmission Date: 20130627
  Serious: Yes (Hospitalization, Other)
  Sender: FDA-Public Use
  Company Number: US-PFIZER INC-2012187615

PATIENT
  Age: 57 Year
  Sex: Female
  Weight: 77.1 kg

DRUGS (5)
  1. LYRICA [Suspect]
     Indication: FIBROMYALGIA
     Dosage: UNK
     Route: 048
  2. LYRICA [Suspect]
     Dosage: 225 mg, 2x/day
     Route: 048
  3. VICODIN HP [Suspect]
     Indication: RHEUMATOID ARTHRITIS
     Dosage: UNK
  4. PRILOSEC [Concomitant]
     Indication: GASTROOESOPHAGEAL REFLUX DISEASE
     Dosage: 20 mg, daily
  5. XANAX [Concomitant]
     Indication: CHEST PAIN
     Dosage: UNK, as needed

REACTIONS (6)
  - Cholelithiasis [Unknown]
  - Carpal tunnel syndrome [Unknown]
  - Fluid retention [Unknown]
  - Cerebrovascular accident [Unknown]
  - Weight increased [Unknown]
  - Drug ineffective [Unknown]
